FAERS Safety Report 24939639 (Version 2)
Quarter: 2025Q2

REPORT INFORMATION
  Report Type: Report from Study
  Country: US (occurrence: US)
  Receive Date: 20250207
  Receipt Date: 20250403
  Transmission Date: 20250717
  Serious: Yes (Other)
  Sender: ABBVIE
  Company Number: US-ABBVIE-6109420

PATIENT
  Sex: Female

DRUGS (1)
  1. HUMIRA [Suspect]
     Active Substance: ADALIMUMAB
     Indication: Crohn^s disease
     Route: 058
     Dates: start: 20210719, end: 20250304

REACTIONS (4)
  - Acute cholecystitis necrotic [Recovering/Resolving]
  - Product dispensing error [Unknown]
  - Pain [Unknown]
  - Therapeutic product effect decreased [Unknown]
